FAERS Safety Report 5756523-6 (Version None)
Quarter: 2008Q2

REPORT INFORMATION
  Report Type: 
  Country: None (occurrence: None)
  Receive Date: 20080529
  Receipt Date: 20080513
  Transmission Date: 20081010
  Serious: Yes (Hospitalization)
  Sender: FDA-Public Use
  Company Number: 2008AL004437

PATIENT
  Age: 72 Year
  Sex: Male
  Weight: 86.1834 kg

DRUGS (5)
  1. DIGOXIN [Suspect]
     Indication: CARDIAC DISORDER
     Dosage: 0.125MG DAILY PO
     Route: 048
  2. MEXILETINE HYDROCHLORIDE [Concomitant]
  3. COREG [Concomitant]
  4. FUROSEMIDE [Concomitant]
  5. SPIRONOLACTONE [Concomitant]

REACTIONS (3)
  - CONDITION AGGRAVATED [None]
  - DIZZINESS [None]
  - HEART RATE DECREASED [None]
